FAERS Safety Report 21347395 (Version 2)
Quarter: 2022Q4

REPORT INFORMATION
  Report Type: Report from Study
  Country: DE (occurrence: DE)
  Receive Date: 20220919
  Receipt Date: 20221025
  Transmission Date: 20230113
  Serious: Yes (Hospitalization, Other)
  Sender: FDA-Public Use
  Company Number: DE-BRISTOL-MYERS SQUIBB COMPANY-2022-052580

PATIENT
  Age: 65 Year
  Sex: Female

DRUGS (12)
  1. OPDIVO [Suspect]
     Active Substance: NIVOLUMAB
     Indication: Non-small cell lung cancer
     Dosage: EVERY 3 WEEKS
     Route: 042
     Dates: start: 20220329, end: 20220421
  2. OPDIVO [Suspect]
     Active Substance: NIVOLUMAB
     Dosage: DOSE : UNAVAILABLE;     FREQ : ONE CYCLE
     Route: 065
     Dates: start: 202204
  3. YERVOY [Suspect]
     Active Substance: IPILIMUMAB
     Indication: Non-small cell lung cancer
     Dosage: EVERY 6 WEEKS
     Route: 042
     Dates: start: 20220329, end: 20220329
  4. YERVOY [Suspect]
     Active Substance: IPILIMUMAB
     Route: 065
     Dates: start: 202204
  5. CARBOPLATIN [Suspect]
     Active Substance: CARBOPLATIN
     Indication: Non-small cell lung cancer
     Dosage: EVERY 3 WEEKS
     Route: 042
     Dates: start: 20220329, end: 20220329
  6. CARBOPLATIN [Suspect]
     Active Substance: CARBOPLATIN
     Route: 042
     Dates: start: 20220328
  7. Tavor [Concomitant]
     Indication: Product used for unknown indication
     Route: 065
     Dates: start: 20190101
  8. DEXAMETHASONE [Concomitant]
     Active Substance: DEXAMETHASONE
     Indication: Product used for unknown indication
     Route: 065
     Dates: start: 20220207
  9. LEVETIRACETAM [Concomitant]
     Active Substance: LEVETIRACETAM
     Indication: Product used for unknown indication
     Route: 065
     Dates: start: 20220221
  10. FOLIC ACID [Concomitant]
     Active Substance: FOLIC ACID
     Indication: Product used for unknown indication
     Route: 065
     Dates: start: 20220309, end: 20220329
  11. PREDNISOLONE [Concomitant]
     Active Substance: PREDNISOLONE
     Indication: Product used for unknown indication
     Dates: start: 20220510
  12. Tavor [Concomitant]
     Indication: Product used for unknown indication
     Route: 065
     Dates: start: 20190101

REACTIONS (6)
  - Thrombocytopenia [Recovering/Resolving]
  - Anaemia [Not Recovered/Not Resolved]
  - Immune-mediated enterocolitis [Recovering/Resolving]
  - Thrombocytosis [Recovering/Resolving]
  - Diarrhoea [Unknown]
  - Anaemia of chronic disease [Recovering/Resolving]

NARRATIVE: CASE EVENT DATE: 20220420
